FAERS Safety Report 14333278 (Version 4)
Quarter: 2018Q2

REPORT INFORMATION
  Report Type: Spontaneous
  Country: DE (occurrence: DE)
  Receive Date: 20171228
  Receipt Date: 20180424
  Transmission Date: 20180711
  Serious: Yes (Hospitalization, Other)
  Sender: FDA-Public Use
  Company Number: DE-SA-2017SA260242

PATIENT
  Age: 30 Year
  Sex: Female
  Weight: 60 kg

DRUGS (2)
  1. LEMTRADA [Suspect]
     Active Substance: ALEMTUZUMAB
     Indication: MULTIPLE SCLEROSIS
     Route: 041
     Dates: start: 20170206, end: 20170210
  2. CITALOPRAM [Concomitant]
     Active Substance: CITALOPRAM HYDROBROMIDE
     Indication: DEPRESSION
     Route: 065
     Dates: start: 201501

REACTIONS (20)
  - Haemolytic anaemia [Recovered/Resolved]
  - General physical health deterioration [Unknown]
  - Asthenia [Unknown]
  - Muscle spasticity [Recovering/Resolving]
  - Neck pain [Unknown]
  - Urinary tract infection [Recovered/Resolved]
  - Parvovirus B19 infection [Unknown]
  - Haemoglobin decreased [Recovered/Resolved]
  - Splenomegaly [Recovered/Resolved]
  - Goodpasture^s syndrome [Unknown]
  - Fatigue [Unknown]
  - Malaise [Unknown]
  - Muscular weakness [Unknown]
  - Body temperature increased [Recovered/Resolved]
  - CD4 lymphocytes decreased [Unknown]
  - Gait disturbance [Recovering/Resolving]
  - Pollakiuria [Recovered/Resolved]
  - Proteinuria [Recovered/Resolved]
  - Quadriparesis [Unknown]
  - T-lymphocyte count decreased [Unknown]

NARRATIVE: CASE EVENT DATE: 20171212
